FAERS Safety Report 21583329 (Version 2)
Quarter: 2022Q4

REPORT INFORMATION
  Report Type: Spontaneous
  Country: CO (occurrence: None)
  Receive Date: 20221111
  Receipt Date: 20221222
  Transmission Date: 20230112
  Serious: Yes (Hospitalization)
  Sender: FDA-Public Use
  Company Number: CO-Merck Healthcare KGaA-9363545

PATIENT
  Age: 25 Year
  Sex: Female

DRUGS (1)
  1. MAVENCLAD [Suspect]
     Active Substance: CLADRIBINE
     Indication: Relapsing-remitting multiple sclerosis
     Dosage: YEAR ONE WEEK ONE THERAPY: TOOK FIRST 3 DAYS, AS OF 02 NOV 2022

REACTIONS (3)
  - Bradycardia [Unknown]
  - Hypotension [Unknown]
  - Oxygen saturation decreased [Unknown]
